FAERS Safety Report 8494567-4 (Version None)
Quarter: 2012Q3

REPORT INFORMATION
  Report Type: 
  Country: None (occurrence: None)
  Receive Date: 20120709
  Receipt Date: 20120703
  Transmission Date: 20120928
  Serious: Yes (Hospitalization)
  Sender: FDA-Public Use
  Company Number: PHHY2012FR057190

PATIENT
  Sex: Female
  Weight: 13.5 kg

DRUGS (1)
  1. ACZ885 [Suspect]
     Indication: HYPER IGD SYNDROME
     Dosage: 4 MG/KG (TOTAL OF 54 MG) EVERY 6 WEEKS
     Route: 058

REACTIONS (3)
  - C-REACTIVE PROTEIN INCREASED [None]
  - INFECTION [None]
  - PYREXIA [None]
